FAERS Safety Report 12370321 (Version 2)
Quarter: 2016Q4

REPORT INFORMATION
  Report Type: Report from Study
  Country: None (occurrence: DE)
  Receive Date: 20160516
  Receipt Date: 20161021
  Transmission Date: 20170207
  Serious: Yes (Hospitalization, Other)
  Sender: FDA-Public Use
  Company Number: DE-ABBVIE-16K-062-1622278-00

PATIENT
  Age: 58 Year
  Sex: Male

DRUGS (3)
  1. PANTOZOL [Concomitant]
     Active Substance: PANTOPRAZOLE SODIUM
     Indication: PRODUCT USED FOR UNKNOWN INDICATION
  2. NOVAMIN [Concomitant]
     Active Substance: PROCHLORPERAZINE MALEATE
     Indication: PRODUCT USED FOR UNKNOWN INDICATION
  3. HUMIRA [Suspect]
     Active Substance: ADALIMUMAB
     Indication: PSORIASIS
     Route: 058
     Dates: start: 20120614, end: 20150815

REACTIONS (24)
  - Diverticulitis [Recovered/Resolved with Sequelae]
  - Impaired healing [Recovered/Resolved]
  - Ileus [Recovered/Resolved with Sequelae]
  - Abdominal adhesions [Unknown]
  - Cardiac arrest [Recovered/Resolved with Sequelae]
  - Adhesion [Unknown]
  - Bladder injury [Recovered/Resolved]
  - Extravasation of urine [Unknown]
  - Gastrointestinal ischaemia [Unknown]
  - Abdominal abscess [Recovered/Resolved]
  - Colon cancer [Unknown]
  - Bladder disorder [Unknown]
  - Large intestinal stenosis [Unknown]
  - Systemic inflammatory response syndrome [Recovered/Resolved]
  - Colonic abscess [Recovered/Resolved with Sequelae]
  - Apical granuloma [Unknown]
  - Intestinal polyp [Unknown]
  - Intestinal ulcer [Recovered/Resolved with Sequelae]
  - Serositis [Recovered/Resolved]
  - Peritonitis [Unknown]
  - Urinary bladder rupture [Recovered/Resolved]
  - Intestinal perforation [Unknown]
  - Large intestine benign neoplasm [Recovered/Resolved with Sequelae]
  - Cardiac arrest [Recovered/Resolved]

NARRATIVE: CASE EVENT DATE: 2015
